FAERS Safety Report 8926532 (Version 2)
Quarter: 2012Q4

REPORT INFORMATION
  Report Type: 
  Country: EC (occurrence: EC)
  Receive Date: 20121127
  Receipt Date: 20121223
  Transmission Date: 20130627
  Serious: Yes (Death, Hospitalization)
  Sender: FDA-Public Use
  Company Number: PHHY2012EC106180

PATIENT
  Sex: Male

DRUGS (4)
  1. STALEVO [Suspect]
     Indication: PARKINSON^S DISEASE
     Dosage: UNK UKN, 150/37.5/200 mg, once a day
     Route: 048
     Dates: start: 20110918, end: 20120614
  2. RAVALGEN [Concomitant]
     Dosage: 75 mg, QD
     Route: 048
  3. SOMACINA [Concomitant]
  4. ENSURE [Concomitant]
     Route: 048

REACTIONS (2)
  - Pneumonia [Fatal]
  - Dyspnoea [Fatal]
